FAERS Safety Report 16455048 (Version 1)
Quarter: 2019Q2

REPORT INFORMATION
  Report Type: Spontaneous
  Country: US (occurrence: US)
  Receive Date: 20190620
  Receipt Date: 20190620
  Transmission Date: 20190711
  Serious: No
  Sender: FDA-Public Use
  Company Number: US-AUROBINDO-AUR-APU-2018-036388

PATIENT
  Sex: Female

DRUGS (1)
  1. TAMSULOSIN HYDROCHLORIDE CAPSULES USP 0.4 MG [Suspect]
     Active Substance: TAMSULOSIN HYDROCHLORIDE
     Indication: URINE OUTPUT INCREASED
     Dosage: UNK UNK, ONCE A DAY
     Route: 065
     Dates: start: 20180630

REACTIONS (2)
  - Adverse event [Unknown]
  - Gluten sensitivity [Unknown]
